FAERS Safety Report 6964627-5 (Version None)
Quarter: 2010Q3

REPORT INFORMATION
  Report Type: 
  Country: None (occurrence: None)
  Receive Date: 20100903
  Receipt Date: 20100823
  Transmission Date: 20110219
  Serious: Yes (Other)
  Sender: FDA-Public Use
  Company Number: US-PAR PHARMACEUTICAL, INC-2010SCPR001982

PATIENT

DRUGS (2)
  1. TRAMADOL HCL [Suspect]
     Indication: JOINT INJURY
     Dosage: 600-800 MG DAILY
     Route: 065
  2. KETOROLAC [Concomitant]
     Indication: PRODUCT USED FOR UNKNOWN INDICATION
     Dosage: UNK
     Route: 065

REACTIONS (2)
  - CHLAMYDIAL INFECTION [None]
  - DRUG EXPOSURE DURING PREGNANCY [None]
